FAERS Safety Report 5948773-0 (Version None)
Quarter: 2008Q4

REPORT INFORMATION
  Report Type: 
  Country: None (occurrence: None)
  Receive Date: 20081107
  Receipt Date: 20081024
  Transmission Date: 20090506
  Serious: Yes (Hospitalization)
  Sender: FDA-Public Use
  Company Number: 2008S1019273

PATIENT
  Age: 43 Year
  Sex: Male

DRUGS (4)
  1. FENTANYL TRANSDERMAL SYSTEM [Suspect]
     Indication: BACK PAIN
     Dosage: 75 UG;EVERY HOUR; TRANSDERMAL
     Route: 062
     Dates: start: 20080829
  2. LYRICA [Concomitant]
  3. VALIUM [Concomitant]
  4. ROXICODONE [Concomitant]

REACTIONS (4)
  - DYSARTHRIA [None]
  - IMPAIRED DRIVING ABILITY [None]
  - SOMNOLENCE [None]
  - TRANSIENT ISCHAEMIC ATTACK [None]
